FAERS Safety Report 8142061-2 (Version None)
Quarter: 2012Q1

REPORT INFORMATION
  Report Type: 
  Country: None (occurrence: None)
  Receive Date: 20120103
  Receipt Date: 20111021
  Transmission Date: 20120608
  Serious: No
  Sender: FDA-Public Use
  Company Number: AE-2011-002572

PATIENT
  Age: 59 Year
  Sex: Female
  Weight: 96.6162 kg

DRUGS (5)
  1. RIBAVIRIN [Concomitant]
  2. METFORMIN HCL [Concomitant]
  3. HYDROCHLOROTHIAZIDE [Concomitant]
  4. INCIVEK [Suspect]
     Dosage: 2250 MG (750 MG,1 IN 8 HR),ORAL
     Route: 048
     Dates: start: 20111014
  5. INTERFERON (PEGINTERFERON ALFA-2A) [Concomitant]

REACTIONS (2)
  - RASH [None]
  - NAUSEA [None]
